FAERS Safety Report 5125962-9 (Version None)
Quarter: 2006Q3

REPORT INFORMATION
  Report Type: 
  Country: None (occurrence: None)
  Receive Date: 20060821
  Receipt Date: 20050814
  Transmission Date: 20061208
  Serious: Yes (Other)
  Sender: FDA-Public Use
  Company Number: 417

PATIENT
  Age: 42 Year
  Sex: Female

DRUGS (1)
  1. FLUOXETINE [Suspect]
     Dosage: 30 MG - ORAL
     Route: 048

REACTIONS (1)
  - PHARYNGOLARYNGEAL PAIN [None]
